FAERS Safety Report 15731489 (Version 1)
Quarter: 2018Q4

REPORT INFORMATION
  Report Type: Report from Study
  Country: US (occurrence: US)
  Receive Date: 20181217
  Receipt Date: 20181217
  Transmission Date: 20190205
  Serious: No
  Sender: FDA-Public Use
  Company Number: US-LUNDBECK-DKLU2058252

PATIENT
  Age: 55 Year
  Sex: Male

DRUGS (1)
  1. NORTHERA [Suspect]
     Active Substance: DROXIDOPA
     Indication: ORTHOSTATIC HYPOTENSION
     Dosage: 100 - 300 MG
     Route: 065
     Dates: start: 2016

REACTIONS (4)
  - Dizziness [Recovering/Resolving]
  - Supine hypertension [Unknown]
  - Presyncope [Unknown]
  - Neck pain [Unknown]
